FAERS Safety Report 8379103-5 (Version None)
Quarter: 2012Q2

REPORT INFORMATION
  Report Type: 
  Country: None (occurrence: None)
  Receive Date: 20120522
  Receipt Date: 20120522
  Transmission Date: 20120825
  Serious: Yes (Hospitalization)
  Sender: FDA-Public Use
  Company Number: None

PATIENT
  Age: 64 Year
  Sex: Male
  Weight: 66.5 kg

DRUGS (2)
  1. MOXIFLOXACIN [Suspect]
     Indication: UPPER RESPIRATORY TRACT INFECTION
     Dosage: 400 MG EVERY DAY PO
     Route: 048
     Dates: start: 20111117, end: 20111121
  2. MOXIFLOXACIN [Suspect]
     Indication: BRONCHITIS
     Dosage: 400 MG EVERY DAY PO
     Route: 048
     Dates: start: 20111117, end: 20111121

REACTIONS (3)
  - SMALL INTESTINAL OBSTRUCTION [None]
  - DIARRHOEA [None]
  - CONDITION AGGRAVATED [None]
